FAERS Safety Report 7521427-5 (Version None)
Quarter: 2011Q2

REPORT INFORMATION
  Report Type: 
  Country: None (occurrence: None)
  Receive Date: 20110603
  Receipt Date: 20110520
  Transmission Date: 20111010
  Serious: Yes (Hospitalization)
  Sender: FDA-Public Use
  Company Number: US-JNJFOC-20110502053

PATIENT
  Sex: Male
  Weight: 67.6 kg

DRUGS (7)
  1. MESALAMINE [Concomitant]
     Route: 065
  2. PREDNISONE [Concomitant]
     Route: 065
  3. REMICADE [Suspect]
     Indication: INFLAMMATORY BOWEL DISEASE
     Route: 042
     Dates: start: 20090108
  4. REMICADE [Suspect]
     Route: 042
     Dates: start: 20110119
  5. ANTIBIOTICS [Concomitant]
     Indication: INFLAMMATORY BOWEL DISEASE
     Route: 065
  6. PROBIOTICS [Concomitant]
     Route: 065
  7. CYCLOSPORINE [Suspect]
     Indication: PRODUCT USED FOR UNKNOWN INDICATION
     Route: 065

REACTIONS (1)
  - BLOOD CREATININE INCREASED [None]
